FAERS Safety Report 7643115-7 (Version None)
Quarter: 2011Q3

REPORT INFORMATION
  Report Type: 
  Country: None (occurrence: None)
  Receive Date: 20110729
  Receipt Date: 20110719
  Transmission Date: 20111222
  Serious: Yes (Life-Threatening)
  Sender: FDA-Public Use
  Company Number: DE-BRISTOL-MYERS SQUIBB COMPANY-15932270

PATIENT
  Age: 59 Year
  Sex: Female

DRUGS (5)
  1. ASPIRIN [Concomitant]
     Dosage: ACETYLSALICYLIC ACID TAB.
     Route: 048
  2. SIMVABETA [Concomitant]
     Dosage: SIMVABETA TAB.
     Route: 048
  3. METFORMIN HCL [Suspect]
     Indication: DIABETES MELLITUS
     Route: 048
  4. RAMIPRIL [Concomitant]
     Route: 048
  5. AMLODIPINE BESYLATE [Concomitant]
     Dosage: AMLODIPINE TAB.
     Route: 048

REACTIONS (3)
  - RENAL FAILURE ACUTE [None]
  - VOMITING [None]
  - LACTIC ACIDOSIS [None]
